FAERS Safety Report 13515711 (Version 1)
Quarter: 2017Q2

REPORT INFORMATION
  Report Type: Spontaneous
  Country: TW (occurrence: TW)
  Receive Date: 20170504
  Receipt Date: 20170504
  Transmission Date: 20170830
  Serious: Yes (Hospitalization)
  Sender: FDA-Public Use
  Company Number: TW-AMGEN-TWNSP2017067795

PATIENT
  Age: 57 Year
  Sex: Male

DRUGS (3)
  1. ENBREL [Suspect]
     Active Substance: ETANERCEPT
     Indication: PSORIASIS
     Dosage: 25MG, BIW
     Route: 058
     Dates: start: 20121121, end: 20170411
  2. CLOBETASOL 0.05% [Concomitant]
     Active Substance: CLOBETASOL
     Dosage: 1 G, BID
     Route: 061
  3. VITAMINS NOS [Concomitant]
     Active Substance: VITAMINS
     Dosage: 1 G, BID
     Route: 061

REACTIONS (2)
  - Road traffic accident [Unknown]
  - Loss of consciousness [Unknown]

NARRATIVE: CASE EVENT DATE: 20170413
